FAERS Safety Report 6347871-X (Version None)
Quarter: 2009Q3

REPORT INFORMATION
  Report Type: 
  Country: None (occurrence: None)
  Receive Date: 20090910
  Receipt Date: 20090901
  Transmission Date: 20100115
  Serious: Yes (Death)
  Sender: FDA-Public Use
  Company Number: FR-AMGEN-UK362677

PATIENT
  Age: 81 Year
  Sex: Male
  Weight: 82 kg

DRUGS (3)
  1. VECTIBIX [Suspect]
     Indication: COLORECTAL CANCER
     Route: 042
     Dates: start: 20090417, end: 20090722
  2. EMEND [Concomitant]
     Route: 065
     Dates: start: 20090417
  3. UNSPECIFIED MEDICATION [Concomitant]
     Route: 065
     Dates: start: 20090417, end: 20090616

REACTIONS (1)
  - MALIGNANT NEOPLASM PROGRESSION [None]
